FAERS Safety Report 8199784-9 (Version None)
Quarter: 2012Q1

REPORT INFORMATION
  Report Type: 
  Country: None (occurrence: None)
  Receive Date: 20120312
  Receipt Date: 20120302
  Transmission Date: 20120608
  Serious: Yes (Hospitalization, Other)
  Sender: FDA-Public Use
  Company Number: US-BIOGENIDEC-2012BI001215

PATIENT
  Age: 39 Year
  Sex: Female

DRUGS (8)
  1. TYSABRI [Suspect]
     Indication: MULTIPLE SCLEROSIS
     Route: 042
     Dates: start: 20111027, end: 20111201
  2. MORPHINE SULFATE [Concomitant]
     Indication: OSTEONECROSIS
  3. MORPHINE [Concomitant]
     Indication: OSTEONECROSIS
     Dates: start: 20080301
  4. LORTAB [Concomitant]
     Indication: BURSITIS
  5. TIZANIDINE HCL [Concomitant]
     Indication: MUSCLE SPASMS
  6. DILAUDID [Concomitant]
     Indication: OSTEONECROSIS
  7. METHADON HCL TAB [Concomitant]
     Indication: OSTEONECROSIS
     Dates: start: 20080301
  8. SOMA [Concomitant]
     Indication: MUSCLE SPASMS

REACTIONS (6)
  - OSTEONECROSIS [None]
  - ARTHRALGIA [None]
  - BONE MARROW OEDEMA [None]
  - POST PROCEDURAL SWELLING [None]
  - PROCEDURAL PAIN [None]
  - INSOMNIA [None]
